FAERS Safety Report 7470539-3 (Version None)
Quarter: 2011Q2

REPORT INFORMATION
  Report Type: 
  Country: None (occurrence: None)
  Receive Date: 20110510
  Receipt Date: 20110429
  Transmission Date: 20111010
  Serious: Yes (Hospitalization)
  Sender: FDA-Public Use
  Company Number: FR-ACTELION-A-CH2011-48166

PATIENT
  Age: 39 Year
  Sex: Female

DRUGS (2)
  1. TRACLEER [Suspect]
     Dosage: 32 MG, BID
     Route: 048
     Dates: start: 20110314, end: 20110403
  2. TRACLEER [Suspect]
     Indication: PULMONARY ARTERIAL HYPERTENSION
     Dosage: 62.5 MG, BID
     Route: 048
     Dates: start: 20080101, end: 20080101

REACTIONS (6)
  - CARDIAC FAILURE [None]
  - OEDEMA PERIPHERAL [None]
  - RENAL FAILURE [None]
  - GAMMA-GLUTAMYLTRANSFERASE INCREASED [None]
  - DYSPNOEA [None]
  - WEIGHT INCREASED [None]
